FAERS Safety Report 18639281 (Version 1)
Quarter: 2020Q4

REPORT INFORMATION
  Report Type: Spontaneous
  Country: US (occurrence: US)
  Receive Date: 20201219
  Receipt Date: 20201219
  Transmission Date: 20210114
  Serious: No
  Sender: FDA-Public Use
  Company Number: US-JNJFOC-20201225433

PATIENT
  Sex: Male
  Weight: 97.16 kg

DRUGS (10)
  1. ATORVASTATIN [Concomitant]
     Active Substance: ATORVASTATIN
  2. POTASSIUM CHLORIDE. [Concomitant]
     Active Substance: POTASSIUM CHLORIDE
     Route: 065
  3. PANTOPRAZOLE [Concomitant]
     Active Substance: PANTOPRAZOLE
  4. XARELTO [Suspect]
     Active Substance: RIVAROXABAN
     Indication: ATRIAL FIBRILLATION
     Route: 048
  5. METOPROLOL. [Concomitant]
     Active Substance: METOPROLOL
  6. TRIAMTERENE. [Concomitant]
     Active Substance: TRIAMTERENE
  7. XARELTO [Suspect]
     Active Substance: RIVAROXABAN
     Indication: CEREBROVASCULAR ACCIDENT PROPHYLAXIS
  8. FENOFIBRATE. [Concomitant]
     Active Substance: FENOFIBRATE
  9. FLECAINIDE [Concomitant]
     Active Substance: FLECAINIDE
  10. LISINOPRIL. [Concomitant]
     Active Substance: LISINOPRIL

REACTIONS (2)
  - Musculoskeletal stiffness [Unknown]
  - Headache [Unknown]
